FAERS Safety Report 5504282-4 (Version None)
Quarter: 2007Q4

REPORT INFORMATION
  Report Type: 
  Country: None (occurrence: None)
  Receive Date: 20071101
  Receipt Date: 20071018
  Transmission Date: 20080405
  Serious: Yes (Life-Threatening, Hospitalization, Disabling, Other)
  Sender: FDA-Public Use
  Company Number: GB-RANBAXY-2007RR-07757

PATIENT

DRUGS (11)
  1. AMOXICILLIN [Suspect]
     Dosage: 500 MG, TID
     Route: 048
     Dates: start: 20070330, end: 20070506
  2. CIPROFLOXACIN [Suspect]
     Dosage: 250 MG, BID
     Dates: start: 20070502, end: 20070504
  3. ASPIRIN [Concomitant]
     Dosage: 75 MG, QD
     Route: 048
  4. DIAZEPAM [Concomitant]
     Dosage: 2 MG, QD
     Route: 048
  5. ESCITALOPRAM OXALATE [Concomitant]
     Dosage: 10 MG, QD
     Route: 048
  6. FRUSEMIDE [Concomitant]
     Dosage: 40 MG, QD
     Route: 048
     Dates: end: 20070427
  7. PREDNISOLONE [Concomitant]
     Dosage: 30 MG, QD
     Route: 048
     Dates: start: 20070426, end: 20070502
  8. RAMIPRIL [Concomitant]
     Dosage: 2.5 MG, QD
     Route: 048
     Dates: end: 20070425
  9. ALBUTEROL [Concomitant]
     Dosage: 5 MG, QID
     Route: 055
     Dates: start: 20070424, end: 20070430
  10. SERETIDE [Concomitant]
     Dosage: 2 DF, BID
     Route: 055
  11. SIMVASTATIN [Concomitant]
     Dosage: 10 MG, UNK
     Route: 048

REACTIONS (1)
  - CLOSTRIDIUM DIFFICILE COLITIS [None]
